FAERS Safety Report 7294513-5 (Version None)
Quarter: 2011Q1

REPORT INFORMATION
  Report Type: 
  Country: None (occurrence: None)
  Receive Date: 20110216
  Receipt Date: 20110201
  Transmission Date: 20110831
  Serious: No
  Sender: FDA-Public Use
  Company Number: US-BIOGENIDEC-2010BI040066

PATIENT
  Sex: Female

DRUGS (1)
  1. TYSABRI [Suspect]
     Indication: MULTIPLE SCLEROSIS
     Route: 042
     Dates: start: 20080304

REACTIONS (6)
  - HEADACHE [None]
  - PAIN [None]
  - AMNESIA [None]
  - MIGRAINE [None]
  - MEMORY IMPAIRMENT [None]
  - MUSCLE SPASMS [None]
